FAERS Safety Report 9298024 (Version 2)
Quarter: 2013Q2

REPORT INFORMATION
  Report Type: Spontaneous
  Country: GB (occurrence: GB)
  Receive Date: 20130520
  Receipt Date: 20130618
  Transmission Date: 20140414
  Serious: Yes (Other)
  Sender: FDA-Public Use
  Company Number: GB-JNJFOC-20130505755

PATIENT
  Age: 63 Year
  Sex: Female

DRUGS (1)
  1. XEPLION [Suspect]
     Indication: PRODUCT USED FOR UNKNOWN INDICATION
     Route: 030
     Dates: start: 20130223, end: 20130429

REACTIONS (4)
  - Delusional disorder, unspecified type [Unknown]
  - Paranoia [Unknown]
  - Mental disorder [Unknown]
  - Drug ineffective [Unknown]
